FAERS Safety Report 6816219-6 (Version None)
Quarter: 2010Q3

REPORT INFORMATION
  Report Type: 
  Country: None (occurrence: None)
  Receive Date: 20100701
  Receipt Date: 20100701
  Transmission Date: 20110219
  Serious: No
  Sender: FDA-Public Use
  Company Number: None

PATIENT
  Sex: Male
  Weight: 103.4201 kg

DRUGS (1)
  1. TAMSULOSIN HCL [Suspect]
     Indication: PROSTATIC DISORDER
     Dosage: 1 DAILY
     Dates: start: 20100606, end: 20100612

REACTIONS (3)
  - DIZZINESS [None]
  - DYSSTASIA [None]
  - DYSURIA [None]
